FAERS Safety Report 17480206 (Version 1)
Quarter: 2020Q1

REPORT INFORMATION
  Report Type: Spontaneous
  Country: PL (occurrence: PL)
  Receive Date: 20200228
  Receipt Date: 20200228
  Transmission Date: 20200409
  Serious: Yes (Other)
  Sender: FDA-Public Use
  Company Number: NVSC2020PL050038

PATIENT
  Age: 69 Year
  Sex: Male
  Weight: 62 kg

DRUGS (1)
  1. GLIVEC [Suspect]
     Active Substance: IMATINIB MESYLATE
     Indication: RETROPERITONEAL CANCER
     Dosage: 400 MG, Q24H (THERAPY ONGOING)
     Route: 048
     Dates: start: 20151218

REACTIONS (1)
  - Prostate cancer metastatic [Unknown]
